FAERS Safety Report 14638708 (Version 3)
Quarter: 2019Q3

REPORT INFORMATION
  Report Type: Report from Study
  Country: TR (occurrence: TR)
  Receive Date: 20180315
  Receipt Date: 20190904
  Transmission Date: 20191004
  Serious: Yes (Hospitalization)
  Sender: FDA-Public Use
  Company Number: TR-ROCHE-1952167

PATIENT
  Age: 72 Year
  Sex: Male
  Weight: 64 kg

DRUGS (37)
  1. IBRUTINIB [Suspect]
     Active Substance: IBRUTINIB
     Indication: CHRONIC LYMPHOCYTIC LEUKAEMIA
     Dosage: LAST DOSE PRIOR TO SAE: 14/JUN/2017
     Route: 048
     Dates: start: 20161024, end: 20170615
  2. TENSARTAN [Concomitant]
     Dosage: 5 UNITS
     Route: 065
  3. VALTREX [Concomitant]
     Active Substance: VALACYCLOVIR HYDROCHLORIDE
     Dosage: 5 UNITS
     Route: 065
  4. CHLORAMBUCIL [Suspect]
     Active Substance: CHLORAMBUCIL
     Indication: CHRONIC LYMPHOCYTIC LEUKAEMIA
     Dosage: LAST DOSE ON 09/FEB/2016
     Route: 048
     Dates: start: 20150908
  5. PULMICORT TURBUHALER [Concomitant]
     Active Substance: BUDESONIDE
     Dosage: 1 UNIT?400 MCG/DOSE 100 DOSES TURBUHALER
     Route: 065
  6. GLUKOFEN [Concomitant]
     Active Substance: METFORMIN HYDROCHLORIDE
     Dosage: 10 UNITS 100 TABLETS?17 UNITS, 100 TABLETS
     Route: 065
  7. BACTRIM [Concomitant]
     Active Substance: SULFAMETHOXAZOLE\TRIMETHOPRIM
  8. REGAPEN [Concomitant]
     Dosage: 2 UNITS, 56 CAPSULES
     Route: 065
  9. REGAPEN [Concomitant]
     Dosage: 12 UNITS, 14 CAPSULES
     Route: 065
  10. FLOTIC [Concomitant]
     Dosage: 4 UNITS, 200 MG/100 ML
     Route: 042
  11. CANDESARTAN. [Concomitant]
     Active Substance: CANDESARTAN
  12. GRANOCYTE [Concomitant]
     Active Substance: LENOGRASTIM
     Dosage: 34 33.6 MIU 1 VIAL 5 UNITS
     Route: 065
  13. SODIUM CHLORIDE. [Concomitant]
     Active Substance: SODIUM CHLORIDE
     Dosage: 100 ML BAG WITH KIT POLYFLEX?30 UNITS
     Route: 065
  14. TENOFOVIR [Concomitant]
     Active Substance: TENOFOVIR
  15. CANTAB [Concomitant]
  16. PULCET [Concomitant]
     Active Substance: PANTOPRAZOLE SODIUM
     Indication: ABDOMINAL PAIN UPPER
     Route: 048
     Dates: start: 20160411
  17. ESOBLOK [Concomitant]
     Dosage: 2 UNITS, 1 VIAL
     Route: 042
  18. EQICEFT [Concomitant]
     Dosage: 24 UNITS, 1 VIAL
     Route: 042
  19. TAZERACIN [Concomitant]
     Dosage: 3 UNITS, 1 VIAL
     Route: 042
  20. VENTOLIN [Concomitant]
     Active Substance: ALBUTEROL SULFATE
     Dosage: 100 MCG/DOSE 200 DOSES INHALER:1 UNIT
     Route: 065
  21. GLIFOR [METFORMIN HYDROCHLORIDE] [Concomitant]
     Dosage: 2X500
     Route: 065
  22. PREGABALIN. [Concomitant]
     Active Substance: PREGABALIN
  23. BUDECORT [Concomitant]
     Active Substance: BUDESONIDE
     Dosage: 6 UNITS, 0.5 MG/ML 2 ML, 20 NEBUL
     Route: 065
  24. FUNGOSTATIN [Concomitant]
     Active Substance: NYSTATIN
     Dosage: 1 UNIT, 100,000 U/ML 48 DOSES SUSPENSION
     Route: 065
  25. OBINUTUZUMAB. [Suspect]
     Active Substance: OBINUTUZUMAB
     Indication: CHRONIC LYMPHOCYTIC LEUKAEMIA
     Dosage: LAST DOSE ON 26/JAN/2016?1000 MG/40 ML SOLUTION
     Route: 042
     Dates: start: 20150908
  26. GRATRYL [Concomitant]
     Dosage: 3 MG/3 ML IV 5 AMPOULES?2 UNITS
     Route: 042
  27. BELOC ZOK [Concomitant]
     Active Substance: METOPROLOL SUCCINATE
     Indication: ARTERIOSCLEROSIS
     Route: 048
     Dates: start: 2010
  28. KLOROBEN [Concomitant]
     Dosage: 2 UNITS, MOUTHWASH
     Route: 065
  29. TAVANIC [Concomitant]
     Active Substance: LEVOFLOXACIN
     Dosage: 7 TABS
     Route: 048
     Dates: start: 20170615, end: 20170621
  30. VENTOLIN [Concomitant]
     Active Substance: ALBUTEROL SULFATE
     Dosage: 2.5 MG/2.5 ML 20 NEBULIZER
     Route: 065
  31. OSDEVITA D3 [Concomitant]
     Dosage: 1 UNIT
     Route: 065
  32. ATROVENT [Concomitant]
     Active Substance: IPRATROPIUM BROMIDE
     Dosage: 12 UNITS, 500 MCG/2 ML 20 VIALS
     Route: 065
  33. ATACAND [Concomitant]
     Active Substance: CANDESARTAN CILEXETIL
     Dosage: 4 UNITS, 28 TABLETS
     Route: 065
  34. RONKOTOL [Concomitant]
     Dosage: 12 UNITS, 2.5 MG/2.5 ML 20 NEBUL
     Route: 065
  35. METEOSPASMYL (ALVERINE CITRATE\DIMETHICONE) [Concomitant]
     Active Substance: ALVERINE CITRATE\DIMETHICONE
     Dosage: 6 UNITS
     Route: 065
  36. METPAMID [METOCLOPRAMIDE HYDROCHLORIDE] [Concomitant]
  37. METFORMIN [Concomitant]
     Active Substance: METFORMIN HYDROCHLORIDE
     Dosage: 2X500
     Route: 065

REACTIONS (2)
  - Pneumonia streptococcal [Recovered/Resolved]
  - Febrile neutropenia [Recovered/Resolved]

NARRATIVE: CASE EVENT DATE: 20161103
